FAERS Safety Report 5179884-8 (Version None)
Quarter: 2006Q4

REPORT INFORMATION
  Report Type: 
  Country: None (occurrence: None)
  Receive Date: 20061212
  Receipt Date: 20061130
  Transmission Date: 20070319
  Serious: Yes (Other)
  Sender: FDA-Public Use
  Company Number: 2006148212

PATIENT
  Sex: Female

DRUGS (6)
  1. XALATAN [Suspect]
     Dosage: 3 MCG (3 MCG, 1 IN 1 D) OPHTHALMIC
     Route: 047
     Dates: start: 20010101
  2. VALSARTAN [Concomitant]
  3. AVANDIA [Concomitant]
  4. SIMVASTATIN [Concomitant]
  5. AMARYL [Concomitant]
  6. ASPIRIN [Concomitant]

REACTIONS (2)
  - EYE HAEMORRHAGE [None]
  - MACULAR DEGENERATION [None]
